FAERS Safety Report 12279755 (Version 1)
Quarter: 2016Q2

REPORT INFORMATION
  Report Type: Report from Study
  Country: IT (occurrence: IT)
  Receive Date: 20160418
  Receipt Date: 20160418
  Transmission Date: 20160815
  Serious: Yes (Death)
  Sender: FDA-Public Use
  Company Number: IT-PFIZER INC-2016207480

PATIENT
  Age: 64 Year
  Sex: Female

DRUGS (9)
  1. IRINOTECAN HCL [Suspect]
     Active Substance: IRINOTECAN HYDROCHLORIDE
     Dosage: UNK
     Route: 042
  2. AFLIBERCEPT [Suspect]
     Active Substance: AFLIBERCEPT
     Indication: COLON CANCER
     Dosage: 264 MG, CYCLIC
     Route: 042
     Dates: start: 20160323, end: 20160323
  3. FLUOROURACIL. [Suspect]
     Active Substance: FLUOROURACIL
     Indication: COLON CANCER
     Dosage: 638.5 MG, CYCLIC
     Route: 042
     Dates: start: 20160323, end: 20160323
  4. PALONOSETRON [Concomitant]
     Active Substance: PALONOSETRON
     Dosage: 250 UG, UNK
     Route: 042
     Dates: start: 20160323, end: 20160323
  5. FOLINIC ACID [Suspect]
     Active Substance: LEUCOVORIN
     Indication: COLON CANCER
     Dosage: 638.5 MG, CYCLIC
     Route: 042
     Dates: start: 20160323, end: 20160323
  6. FLUOROURACIL. [Suspect]
     Active Substance: FLUOROURACIL
     Dosage: 3831 MG, CYCLIC
     Route: 042
     Dates: start: 20160323, end: 20160325
  7. DEXAMETHASONE. [Concomitant]
     Active Substance: DEXAMETHASONE
     Dosage: 8 MG, UNK
     Route: 042
     Dates: start: 20160323, end: 20160323
  8. ATROPINE. [Concomitant]
     Active Substance: ATROPINE
     Dosage: 0.2 MG, UNK
     Route: 042
     Dates: start: 20160323, end: 20160323
  9. IRINOTECAN HCL [Suspect]
     Active Substance: IRINOTECAN HYDROCHLORIDE
     Indication: COLON CANCER
     Dosage: 287.3 MG, CYCLIC
     Route: 042
     Dates: start: 20160323, end: 20160323

REACTIONS (1)
  - Febrile neutropenia [Fatal]

NARRATIVE: CASE EVENT DATE: 20160403
